FAERS Safety Report 15335602 (Version 3)
Quarter: 2019Q3

REPORT INFORMATION
  Report Type: Report from Study
  Country: US (occurrence: US)
  Receive Date: 20180830
  Receipt Date: 20190804
  Transmission Date: 20191004
  Serious: Yes (Death, Hospitalization, Other)
  Sender: FDA-Public Use
  Company Number: PHHY2018US086494

PATIENT
  Age: 21 Year
  Sex: Female
  Weight: 48.3 kg

DRUGS (8)
  1. VANCOMYCIN [Concomitant]
     Active Substance: VANCOMYCIN
     Indication: NEUTROPENIA
     Dosage: 15 MG/KG, UNK
     Route: 042
  2. CYCLOPHOSPHAMIDE. [Concomitant]
     Active Substance: CYCLOPHOSPHAMIDE
     Indication: CHEMOTHERAPY
     Route: 065
  3. FLUDARABINE [Concomitant]
     Active Substance: FLUDARABINE PHOSPHATE
     Indication: CHEMOTHERAPY
     Route: 065
  4. KYMRIAH [Suspect]
     Active Substance: TISAGENLECLEUCEL
     Indication: ACUTE LYMPHOCYTIC LEUKAEMIA
     Dosage: UNK UNK, ONCE/SINGLE (0.2E6/KG BODY WEIGHT)
     Route: 042
     Dates: start: 20180216
  5. CEFEPIN [Concomitant]
     Indication: NEUTROPENIA
     Dosage: 2000 MG, Q8H
     Route: 042
  6. LEVOFLOXACIN. [Concomitant]
     Active Substance: LEVOFLOXACIN
     Indication: NEUTROPENIA
     Dosage: 10 MG/KG, UNK
     Route: 048
  7. LEVETIRACETAM. [Concomitant]
     Active Substance: LEVETIRACETAM
     Indication: PROPHYLAXIS
     Dosage: 500 MG, Q12H
     Route: 042
  8. VORICONAZOLE. [Concomitant]
     Active Substance: VORICONAZOLE
     Indication: NEUTROPENIA
     Dosage: 200 MG, Q12H
     Route: 048

REACTIONS (17)
  - Cytokine release syndrome [Recovered/Resolved]
  - Dysphagia [Unknown]
  - Malignant neoplasm progression [Fatal]
  - Confusional state [Unknown]
  - Acute lymphocytic leukaemia recurrent [Fatal]
  - Encephalopathy [Recovered/Resolved]
  - Somnolence [Unknown]
  - Neutrophil count decreased [Not Recovered/Not Resolved]
  - Muscular weakness [Unknown]
  - Rash [Unknown]
  - Pyrexia [Recovered/Resolved]
  - Amnesia [Unknown]
  - Mental status changes [Unknown]
  - Platelet count decreased [Not Recovered/Not Resolved]
  - Abdominal distension [Unknown]
  - Neurotoxicity [Unknown]
  - Cytopenia [Unknown]

NARRATIVE: CASE EVENT DATE: 20180309
